FAERS Safety Report 10037839 (Version 5)
Quarter: 2015Q1

REPORT INFORMATION
  Report Type: Spontaneous
  Country: US (occurrence: US)
  Receive Date: 20140326
  Receipt Date: 20150210
  Transmission Date: 20150720
  Serious: Yes (Hospitalization, Disabling, Other)
  Sender: FDA-Public Use
  Company Number: US-PFIZER INC-2013358086

PATIENT
  Age: 59 Year
  Sex: Male
  Weight: 85 kg

DRUGS (4)
  1. METFORMIN [Concomitant]
     Active Substance: METFORMIN HYDROCHLORIDE
     Dosage: UNK
  2. ENBREL [Suspect]
     Active Substance: ETANERCEPT
     Indication: PSORIATIC ARTHROPATHY
     Dosage: 50 MG, QWK
     Dates: start: 20050203, end: 20130302
  3. HEPARIN SODIUM. [Suspect]
     Active Substance: HEPARIN SODIUM
     Dosage: 5000 UNIT/ML 1 ML INJ
     Route: 058
  4. PLAVIX [Concomitant]
     Active Substance: CLOPIDOGREL BISULFATE
     Indication: CORONARY ARTERY DISEASE
     Dosage: 75 MG, 1X/DAY
     Route: 048

REACTIONS (56)
  - Neurogenic bladder [Unknown]
  - Optic atrophy [Unknown]
  - Optic neuropathy [Unknown]
  - Malaise [Unknown]
  - Injury [Unknown]
  - Quadriplegia [Unknown]
  - Musculoskeletal pain [Unknown]
  - Rheumatoid arthritis [Unknown]
  - Bursitis [Unknown]
  - Presyncope [Unknown]
  - Neurotoxicity [Unknown]
  - Precancerous mucosal lesion [Unknown]
  - Spinal cord abscess [Unknown]
  - Abasia [Unknown]
  - Demyelination [Unknown]
  - Multiple sclerosis [Unknown]
  - Visual impairment [Not Recovered/Not Resolved]
  - Arthralgia [Unknown]
  - Injection site bruising [Unknown]
  - Myelitis [Unknown]
  - Leukocytosis [Unknown]
  - Neurogenic bowel [Unknown]
  - Pulmonary mass [Not Recovered/Not Resolved]
  - Fall [Unknown]
  - Urinary tract infection staphylococcal [Unknown]
  - Cyst [Unknown]
  - Vomiting [Unknown]
  - Anxiety [Unknown]
  - Spinal cord disorder [Unknown]
  - Central nervous system lesion [Not Recovered/Not Resolved]
  - Epidural haemorrhage [Unknown]
  - Seizure [Unknown]
  - Psoriatic arthropathy [Unknown]
  - Large intestine polyp [Unknown]
  - Headache [Unknown]
  - Dizziness [Unknown]
  - Neuralgia [Unknown]
  - Blood copper decreased [Unknown]
  - Pneumonia [Unknown]
  - Lung disorder [Not Recovered/Not Resolved]
  - Feeling abnormal [Unknown]
  - Enterocolitis viral [Recovered/Resolved]
  - Bursa disorder [Unknown]
  - Blood urine present [Unknown]
  - Cough [Recovered/Resolved]
  - Dehydration [Unknown]
  - Gouty arthritis [Unknown]
  - Joint effusion [Unknown]
  - Diarrhoea [Recovered/Resolved]
  - Vision blurred [Unknown]
  - Erythema [Unknown]
  - Myelitis transverse [Unknown]
  - Cervical myelopathy [Unknown]
  - Muscle spasticity [Unknown]
  - Transaminases increased [Unknown]
  - Diplopia [Unknown]

NARRATIVE: CASE EVENT DATE: 201212
